FAERS Safety Report 4492451-4 (Version None)
Quarter: 2004Q4

REPORT INFORMATION
  Report Type: 
  Country: None (occurrence: None)
  Receive Date: 20041029
  Receipt Date: 20041019
  Transmission Date: 20050328
  Serious: Yes (Hospitalization, Other)
  Sender: FDA-Public Use
  Company Number: 2004239906US

PATIENT
  Age: 51 Year
  Sex: Female

DRUGS (1)
  1. XANAX [Suspect]
     Dosage: RESPIRATORY
     Route: 055

REACTIONS (6)
  - ACCIDENTAL EXPOSURE [None]
  - AGITATION [None]
  - BLOOD PRESSURE INCREASED [None]
  - COMA [None]
  - DRUG TOXICITY [None]
  - SOMNOLENCE [None]
